FAERS Safety Report 24845086 (Version 1)
Quarter: 2025Q1

REPORT INFORMATION
  Report Type: Spontaneous
  Country: ES (occurrence: ES)
  Receive Date: 20250115
  Receipt Date: 20250115
  Transmission Date: 20250408
  Serious: Yes (Hospitalization, Other)
  Sender: NOVARTIS
  Company Number: ES-002147023-NVSC2023ES233185

PATIENT
  Age: 53 Year
  Sex: Female

DRUGS (6)
  1. CYCLOSPORINE [Suspect]
     Active Substance: CYCLOSPORINE
     Indication: Chronic actinic dermatitis
     Dosage: UP TO 5 MG/KG, QD
     Route: 065
  2. PREDNISONE [Suspect]
     Active Substance: PREDNISONE
     Indication: Chronic actinic dermatitis
     Route: 048
  3. HYDROXYCHLOROQUINE [Suspect]
     Active Substance: HYDROXYCHLOROQUINE
     Indication: Chronic actinic dermatitis
     Dosage: MAXIMUM DOSAGE OF 5 MG/KG DAILY, FOR 10 MONTHS
     Route: 065
  4. AZATHIOPRINE [Suspect]
     Active Substance: AZATHIOPRINE
     Indication: Chronic actinic dermatitis
     Dosage: 1.5 MG/KG, QD (ADJUSTED TO TPMT LEVELS FOR 6 MONTHS)
     Route: 065
  5. DUPILUMAB [Suspect]
     Active Substance: DUPILUMAB
     Indication: Chronic actinic dermatitis
     Dosage: 300 MG, BIW (600 MG AT DAY 1 FOLLOWED BY 300 MG EVERY TWO WEEKS)
     Route: 065
  6. BARICITINIB [Concomitant]
     Active Substance: BARICITINIB
     Indication: Chronic actinic dermatitis
     Dosage: 4 MG, QD
     Route: 048

REACTIONS (2)
  - Lymphopenia [Recovered/Resolved]
  - Drug ineffective for unapproved indication [Unknown]
